FAERS Safety Report 16710899 (Version 1)
Quarter: 2019Q3

REPORT INFORMATION
  Report Type: Spontaneous
  Country: FR (occurrence: FR)
  Receive Date: 20190816
  Receipt Date: 20190816
  Transmission Date: 20191004
  Serious: Yes (Hospitalization)
  Sender: FDA-Public Use
  Company Number: FR-PFIZER INC-2019344557

PATIENT
  Age: 81 Year
  Sex: Female
  Weight: 73.6 kg

DRUGS (6)
  1. FUROSEMIDE. [Suspect]
     Active Substance: FUROSEMIDE
     Dosage: 40 MG, 1X/DAY
     Route: 048
  2. SPIRONOLACTONE. [Suspect]
     Active Substance: SPIRONOLACTONE
     Dosage: 25 MG, 1X/DAY
     Route: 048
  3. ESOMEPRAZOLE MAGNESIUM. [Suspect]
     Active Substance: ESOMEPRAZOLE MAGNESIUM
     Dosage: 20 MG, 1X/DAY
     Route: 048
     Dates: end: 20181011
  4. ESCITALOPRAM [Suspect]
     Active Substance: ESCITALOPRAM OXALATE
     Dosage: 10 MG, 1X/DAY
     Route: 048
     Dates: end: 20181105
  5. SIMVASTATINE [Suspect]
     Active Substance: SIMVASTATIN
     Dosage: 20 MG, 1X/DAY
     Route: 048
     Dates: end: 20181011
  6. SERESTA [Suspect]
     Active Substance: OXAZEPAM
     Indication: INSOMNIA
     Dosage: 2 DF, 1X/DAY
     Route: 048

REACTIONS (1)
  - Fall [Recovered/Resolved]

NARRATIVE: CASE EVENT DATE: 20181011
